FAERS Safety Report 15426415 (Version 1)
Quarter: 2018Q3

REPORT INFORMATION
  Report Type: Spontaneous
  Country: US (occurrence: US)
  Receive Date: 20180925
  Receipt Date: 20180925
  Transmission Date: 20181010
  Serious: No
  Sender: FDA-Public Use
  Company Number: US-PFIZER INC-2018352991

PATIENT
  Age: 73 Year
  Sex: Female

DRUGS (1)
  1. LYRICA CR [Suspect]
     Active Substance: PREGABALIN
     Indication: NEURALGIA
     Dosage: 100 MG, DAILY (25 MG, 1 TAB AM+ 75 MG 1 TAB QHS)
     Route: 048
     Dates: start: 2017

REACTIONS (2)
  - Drug prescribing error [Unknown]
  - Somnolence [Recovered/Resolved]
